FAERS Safety Report 9865486 (Version 2)
Quarter: 2014Q1

REPORT INFORMATION
  Report Type: Spontaneous
  Country: US (occurrence: US)
  Receive Date: 20140203
  Receipt Date: 20140203
  Transmission Date: 20141002
  Serious: No
  Sender: FDA-Public Use
  Company Number: US-ALLERGAN-1308578US

PATIENT
  Age: 69 Year
  Sex: Female

DRUGS (1)
  1. RESTASIS [Suspect]
     Indication: DRY EYE
     Dosage: 2 GTT, QHS
     Route: 047
     Dates: start: 201305, end: 20130610

REACTIONS (11)
  - Inappropriate schedule of drug administration [Unknown]
  - Visual acuity reduced [Unknown]
  - Abnormal sensation in eye [Unknown]
  - Drug hypersensitivity [Unknown]
  - Ocular hyperaemia [Recovered/Resolved]
  - Eye pain [Recovered/Resolved]
  - Eye pain [Unknown]
  - Eye irritation [Unknown]
  - Eye irritation [Unknown]
  - Drug ineffective [Unknown]
  - Vision blurred [Unknown]
